FAERS Safety Report 12866462 (Version 1)
Quarter: 2016Q4

REPORT INFORMATION
  Report Type: Spontaneous
  Country: US (occurrence: US)
  Receive Date: 20161020
  Receipt Date: 20161020
  Transmission Date: 20170207
  Serious: No
  Sender: FDA-Public Use
  Company Number: US-SA-2016SA106746

PATIENT
  Age: 44 Year
  Sex: Female

DRUGS (12)
  1. LEVOTHROID [Concomitant]
     Active Substance: LEVOTHYROXINE SODIUM
  2. AMFETAMINE [Concomitant]
     Active Substance: AMPHETAMINE
  3. BUPROPION. [Concomitant]
     Active Substance: BUPROPION
  4. LEVOFLOXACIN. [Concomitant]
     Active Substance: LEVOFLOXACIN
  5. HYDROCODONE BITARTRATE AND ACETAMINOPHEN [Concomitant]
     Active Substance: ACETAMINOPHEN\HYDROCODONE BITARTRATE
  6. TIZANIDINE. [Concomitant]
     Active Substance: TIZANIDINE
  7. ESTRADIOL. [Concomitant]
     Active Substance: ESTRADIOL
  8. AMPYRA [Concomitant]
     Active Substance: DALFAMPRIDINE
  9. CIPROFLOXACIN. [Concomitant]
     Active Substance: CIPROFLOXACIN
  10. GABAPENTIN. [Concomitant]
     Active Substance: GABAPENTIN
  11. VICODIN [Concomitant]
     Active Substance: ACETAMINOPHEN\HYDROCODONE BITARTRATE
  12. AUBAGIO [Suspect]
     Active Substance: TERIFLUNOMIDE
     Indication: MULTIPLE SCLEROSIS
     Route: 048
     Dates: start: 201604

REACTIONS (1)
  - Diarrhoea [Unknown]

NARRATIVE: CASE EVENT DATE: 20160413
